FAERS Safety Report 24258484 (Version 2)
Quarter: 2024Q3

REPORT INFORMATION
  Report Type: Spontaneous
  Country: US (occurrence: US)
  Receive Date: 20240828
  Receipt Date: 20240913
  Transmission Date: 20241017
  Serious: No
  Sender: PFIZER
  Company Number: US-PFIZER INC-202400243034

PATIENT
  Age: 40 Year
  Sex: Male

DRUGS (1)
  1. RITLECITINIB [Suspect]
     Active Substance: RITLECITINIB
     Indication: Alopecia
     Dosage: 100 MG
     Dates: start: 202408, end: 202408

REACTIONS (2)
  - Urinary tract infection [Recovering/Resolving]
  - Off label use [Unknown]
